FAERS Safety Report 7163163-3 (Version None)
Quarter: 2010Q4

REPORT INFORMATION
  Report Type: 
  Country: None (occurrence: None)
  Receive Date: 20101215
  Receipt Date: 20100305
  Transmission Date: 20110411
  Serious: Yes (Life-Threatening, Hospitalization)
  Sender: FDA-Public Use
  Company Number: FR-PFIZER INC-2009310180

PATIENT
  Sex: Male

DRUGS (9)
  1. LYRICA [Suspect]
     Indication: MOTOR DYSFUNCTION
     Dosage: 150 MG, 2X/DAY
     Route: 048
     Dates: start: 20090715, end: 20090929
  2. LYRICA [Suspect]
     Indication: ATAXIA
  3. LIORESAL [Concomitant]
     Indication: MOTOR DYSFUNCTION
     Dosage: 5 MG, 3X/DAY
  4. LIORESAL [Concomitant]
     Indication: ATAXIA
  5. LIORESAL [Concomitant]
     Indication: AMYOTROPHY
  6. PAROXETINE [Concomitant]
     Dosage: 20 MG, 1X/DAY
  7. LYSANXIA [Concomitant]
     Dosage: 10 MG, 2X/DAY
  8. SPIRIVA [Concomitant]
  9. VENTOLIN [Concomitant]

REACTIONS (4)
  - BRONCHOSPASM [None]
  - CARDIAC FAILURE [None]
  - RESPIRATORY FAILURE [None]
  - URINARY INCONTINENCE [None]
